FAERS Safety Report 15948758 (Version 1)
Quarter: 2019Q1

REPORT INFORMATION
  Report Type: Spontaneous
  Country: FR (occurrence: FR)
  Receive Date: 20190212
  Receipt Date: 20190212
  Transmission Date: 20190417
  Serious: Yes (Hospitalization)
  Sender: FDA-Public Use
  Company Number: FR-ROCHE-2259956

PATIENT
  Age: 66 Year
  Sex: Male
  Weight: 67 kg

DRUGS (6)
  1. AVLOCARDYL L.P. [Concomitant]
     Route: 065
  2. TIXTAR [Concomitant]
     Active Substance: RIFAXIMIN
     Route: 065
  3. DUPHALAC (FRANCE) [Concomitant]
     Active Substance: LACTULOSE
     Route: 065
  4. SOLU-MEDROL [Concomitant]
     Active Substance: METHYLPREDNISOLONE SODIUM SUCCINATE
     Route: 065
  5. CELLCEPT [Suspect]
     Active Substance: MYCOPHENOLATE MOFETIL\MYCOPHENOLATE MOFETIL HYDROCHLORIDE
     Indication: LIVER TRANSPLANT
     Route: 048
     Dates: start: 20180824, end: 20180827
  6. INEXIUM [Suspect]
     Active Substance: ESOMEPRAZOLE
     Indication: PROPHYLAXIS
     Route: 042
     Dates: end: 20180827

REACTIONS (2)
  - Thrombocytopenic purpura [Recovered/Resolved]
  - Thrombocytopenia [Recovered/Resolved]

NARRATIVE: CASE EVENT DATE: 20180825
